FAERS Safety Report 8771605 (Version 2)
Quarter: 2012Q4

REPORT INFORMATION
  Report Type: 
  Country: US (occurrence: US)
  Receive Date: 20120906
  Receipt Date: 20120917
  Transmission Date: 20130627
  Serious: Yes (Death)
  Sender: FDA-Public Use
  Company Number: US-ACTELION-A-US2012-70727

PATIENT
  Age: 48 Year
  Sex: Female

DRUGS (4)
  1. TRACLEER [Suspect]
     Indication: PULMONARY ARTERIAL HYPERTENSION
     Route: 048
  2. ADCIRCA [Concomitant]
  3. REMODULIN [Concomitant]
  4. COUMADIN [Concomitant]

REACTIONS (3)
  - Pneumonia [Fatal]
  - Renal failure acute [Fatal]
  - Right ventricular failure [Fatal]
